FAERS Safety Report 4970191-2 (Version None)
Quarter: 2006Q2

REPORT INFORMATION
  Report Type: 
  Country: None (occurrence: None)
  Receive Date: 20060406
  Receipt Date: 20060328
  Transmission Date: 20061013
  Serious: Yes (Other)
  Sender: FDA-Public Use
  Company Number: 200610799BWH

PATIENT
  Age: 72 Year
  Sex: Female

DRUGS (8)
  1. AVELOX [Suspect]
     Indication: UPPER RESPIRATORY TRACT INFECTION
     Dosage: 400 MG, QD, ORAL
     Route: 048
     Dates: start: 20060120, end: 20060124
  2. CARDIZEM [Concomitant]
  3. TENORMIN [Concomitant]
  4. COUMADIN [Concomitant]
  5. POTASSIUM [Concomitant]
  6. ZYLOPRIM [Concomitant]
  7. LASIX [Concomitant]
  8. CARAFATE [Concomitant]

REACTIONS (8)
  - CONTUSION [None]
  - HEART RATE IRREGULAR [None]
  - HYPOAESTHESIA [None]
  - MASS [None]
  - MUSCLE SPASMS [None]
  - OEDEMA PERIPHERAL [None]
  - PAIN IN EXTREMITY [None]
  - TENDONITIS [None]
